FAERS Safety Report 4338910-6 (Version None)
Quarter: 2004Q2

REPORT INFORMATION
  Report Type: 
  Country: None (occurrence: None)
  Receive Date: 20040409
  Receipt Date: 20040401
  Transmission Date: 20050107
  Serious: Yes (Other)
  Sender: FDA-Public Use
  Company Number: DE-SHR-04-023454

PATIENT
  Sex: Female

DRUGS (1)
  1. MIRANOVA (21) (LEVONORGESTREL, ETHINYLESTRADIOL) COATED TABLET [Suspect]
     Dosage: ORAL
     Route: 048

REACTIONS (1)
  - SUDDEN HEARING LOSS [None]
